FAERS Safety Report 5677114-1 (Version None)
Quarter: 2008Q1

REPORT INFORMATION
  Report Type: 
  Country: None (occurrence: None)
  Receive Date: 20080324
  Receipt Date: 20080314
  Transmission Date: 20080703
  Serious: Yes (Hospitalization)
  Sender: FDA-Public Use
  Company Number: BE-JNJFOC-20080303729

PATIENT
  Age: 65 Year
  Sex: Male
  Weight: 92 kg

DRUGS (3)
  1. REMICADE [Suspect]
     Indication: RHEUMATOID ARTHRITIS
     Route: 042
  2. ARCOXIA [Concomitant]
  3. ZYLORIC [Concomitant]

REACTIONS (1)
  - IGA NEPHROPATHY [None]
